FAERS Safety Report 10169916 (Version 2)
Quarter: 2014Q4

REPORT INFORMATION
  Report Type: Spontaneous
  Country: US (occurrence: US)
  Receive Date: 20140513
  Receipt Date: 20141119
  Transmission Date: 20150528
  Serious: Yes (Hospitalization, Other)
  Sender: FDA-Public Use
  Company Number: US-BAYER-2014-070503

PATIENT
  Age: 30 Year
  Sex: Female
  Weight: 124 kg

DRUGS (3)
  1. PARAGARD T380A [Concomitant]
     Active Substance: COPPER
  2. MIRENA [Suspect]
     Active Substance: LEVONORGESTREL
     Indication: CONTRACEPTION
     Dosage: 20 MCG/24HR, CONT
     Route: 015
     Dates: start: 20130214, end: 20131118
  3. ZOLOFT [Concomitant]
     Active Substance: SERTRALINE HYDROCHLORIDE
     Indication: DEPRESSION

REACTIONS (12)
  - Medical device pain [None]
  - Procedural pain [None]
  - Device issue [None]
  - Uterine perforation [None]
  - Post procedural discomfort [None]
  - Depression [None]
  - Fibromyalgia [None]
  - Device use error [None]
  - Headache [None]
  - Anxiety [None]
  - Genital haemorrhage [None]
  - Injury [None]

NARRATIVE: CASE EVENT DATE: 2013
